FAERS Safety Report 14227612 (Version 1)
Quarter: 2017Q4

REPORT INFORMATION
  Report Type: Spontaneous
  Country: US (occurrence: US)
  Receive Date: 20171127
  Receipt Date: 20171127
  Transmission Date: 20180321
  Serious: No
  Sender: FDA-Public Use
  Company Number: US-BAUSCH-BL-2016-032404

PATIENT
  Age: 81 Year
  Sex: Male
  Weight: 100.79 kg

DRUGS (4)
  1. DERMATOP [Suspect]
     Active Substance: PREDNICARBATE
     Indication: INTERTRIGO
     Route: 061
     Dates: start: 2016, end: 201611
  2. LIPITOR [Concomitant]
     Active Substance: ATORVASTATIN CALCIUM
     Indication: PRODUCT USED FOR UNKNOWN INDICATION
  3. PRILOSEC [Concomitant]
     Active Substance: OMEPRAZOLE MAGNESIUM
     Indication: PRODUCT USED FOR UNKNOWN INDICATION
  4. PREDNICARBATE EMOLLIENT CREAM 0.1% (PRASCO) [Suspect]
     Active Substance: PREDNICARBATE
     Indication: INTERTRIGO
     Route: 061
     Dates: start: 201611

REACTIONS (2)
  - Drug dispensing error [Unknown]
  - Drug ineffective [Unknown]

NARRATIVE: CASE EVENT DATE: 2016
